FAERS Safety Report 8524246-6 (Version None)
Quarter: 2012Q3

REPORT INFORMATION
  Report Type: 
  Country: None (occurrence: None)
  Receive Date: 20120720
  Receipt Date: 20120717
  Transmission Date: 20120928
  Serious: Yes (Other)
  Sender: FDA-Public Use
  Company Number: CO-PFIZER INC-2012165297

PATIENT
  Age: 42 Year
  Sex: Male

DRUGS (5)
  1. LIPITOR [Suspect]
     Dosage: 10 MG, 1X/DAY
  2. OLMESARTAN MEDOXOMIL AND HYDROCHLOROTHIZIDE [Suspect]
     Dosage: 20 MG/ 12.5 MG, 1X/DAY
  3. METOPROLOL [Concomitant]
     Dosage: 50 MG, 1X/DAY
  4. VERAPAMIL [Concomitant]
     Dosage: 851 MG, 2X/DAY
  5. OLMESARTAN MEDOXOMIL [Suspect]
     Dosage: 20 MG, 1X/DAY

REACTIONS (2)
  - HYPERTENSIVE EMERGENCY [None]
  - RENAL FAILURE CHRONIC [None]
